FAERS Safety Report 6104020-0 (Version None)
Quarter: 2009Q1

REPORT INFORMATION
  Report Type: 
  Country: None (occurrence: None)
  Receive Date: 20090305
  Receipt Date: 20090304
  Transmission Date: 20090719
  Serious: Yes (Death)
  Sender: FDA-Public Use
  Company Number: GR-BRISTOL-MYERS SQUIBB COMPANY-14514954

PATIENT
  Sex: Male

DRUGS (5)
  1. EFAVIRENZ CAPS [Suspect]
     Route: 048
  2. RALTEGRAVIR [Suspect]
     Route: 048
  3. DARUNAVIR [Suspect]
     Route: 048
  4. RITONAVIR [Suspect]
     Route: 048
  5. EMTRICITABINE [Suspect]
     Route: 065

REACTIONS (1)
  - RESPIRATORY FAILURE [None]
